FAERS Safety Report 10249208 (Version 1)
Quarter: 2014Q2

REPORT INFORMATION
  Report Type: Spontaneous
  Country: US (occurrence: US)
  Receive Date: 20140620
  Receipt Date: 20140620
  Transmission Date: 20141212
  Serious: Yes (Hospitalization, Other)
  Sender: FDA-Public Use
  Company Number: US-ELI_LILLY_AND_COMPANY-US201406005467

PATIENT
  Age: 49 Year
  Sex: Female

DRUGS (10)
  1. HUMULIN 30% REGULAR, 70% NPH [Suspect]
     Indication: TYPE 1 DIABETES MELLITUS
     Dosage: 35 U, EACH MORNING
     Route: 065
  2. HUMULIN 30% REGULAR, 70% NPH [Suspect]
     Dosage: 35 U, EACH EVENING
  3. HUMULIN 30% REGULAR, 70% NPH [Suspect]
     Dosage: 20 U, EACH EVENING
     Route: 065
  4. HUMULIN 30% REGULAR, 70% NPH [Suspect]
     Indication: TYPE 1 DIABETES MELLITUS
     Dosage: 35 U, EACH MORNING
     Route: 065
     Dates: start: 201405
  5. HUMULIN 30% REGULAR, 70% NPH [Suspect]
     Dosage: 35 U, EACH EVENING
     Route: 065
     Dates: start: 201308
  6. HUMULIN 30% REGULAR, 70% NPH [Suspect]
     Dosage: 20 U, EACH EVENING
     Route: 065
     Dates: start: 201405
  7. HUMALOG LISPRO [Suspect]
     Indication: TYPE 1 DIABETES MELLITUS
     Dosage: UNK, PRN
     Route: 065
  8. SYNTHROID [Concomitant]
  9. LYRICA [Concomitant]
  10. ASPIRIN [Concomitant]
     Dosage: 81 MG, UNK

REACTIONS (6)
  - Loss of consciousness [Unknown]
  - Depressed level of consciousness [Unknown]
  - Convulsion [Unknown]
  - Blood glucose decreased [Unknown]
  - Glycosylated haemoglobin increased [Unknown]
  - Underdose [Unknown]
